FAERS Safety Report 9252990 (Version 1)
Quarter: 2013Q1

REPORT INFORMATION
  Report Type: Spontaneous
  Country: US (occurrence: None)
  Receive Date: 20130305
  Receipt Date: 20130305
  Transmission Date: 20140127
  Serious: Yes (Hospitalization)
  Sender: FDA-Public Use
  Company Number: 163-201880-12090882

PATIENT
  Age: 29 Year
  Sex: Female

DRUGS (1)
  1. REVLIMID (LENALIDOMIDE) (25 MILLIGRAM, CAPSULES) [Suspect]
     Indication: MYELOID LEUKAEMIA
     Dosage: 25 MG, 1 IN 1 D, PO
     Route: 048
     Dates: start: 201202

REACTIONS (1)
  - Infection [None]
